FAERS Safety Report 14176969 (Version 1)
Quarter: 2017Q4

REPORT INFORMATION
  Report Type: Spontaneous
  Country: US (occurrence: US)
  Receive Date: 20171110
  Receipt Date: 20171110
  Transmission Date: 20180321
  Serious: Yes (Other)
  Sender: FDA-Public Use
  Company Number: US-SCIEGEN PHARMACEUTICALS INC-2017SCISPO00672

PATIENT

DRUGS (3)
  1. GABAPENTIN TABLETS,USP [Suspect]
     Active Substance: GABAPENTIN
     Indication: NEUROPATHY PERIPHERAL
     Dosage: 800 MG
     Route: 065
     Dates: start: 2010
  2. GABAPENTIN TABLETS,USP [Suspect]
     Active Substance: GABAPENTIN
     Dosage: 800 MG 4 TIMES A DAY (1600 TO 4800 MG DAY)
     Route: 065
  3. ZITHROMAX [Concomitant]
     Active Substance: AZITHROMYCIN DIHYDRATE
     Indication: PRODUCT USED FOR UNKNOWN INDICATION
     Dosage: UNK
     Route: 065

REACTIONS (4)
  - Suicidal ideation [Unknown]
  - Antisocial behaviour [Unknown]
  - Product use in unapproved indication [Unknown]
  - Extra dose administered [Unknown]
